FAERS Safety Report 5787610-4 (Version None)
Quarter: 2008Q2

REPORT INFORMATION
  Report Type: 
  Country: None (occurrence: None)
  Receive Date: 20080625
  Receipt Date: 20071016
  Transmission Date: 20081010
  Serious: No
  Sender: FDA-Public Use
  Company Number: US-ASTRAZENECA-2007UW24004

PATIENT
  Age: 80 Year
  Sex: Female
  Weight: 50.3 kg

DRUGS (4)
  1. PULMICORT FLEXHALER [Suspect]
     Indication: EMPHYSEMA
     Route: 055
     Dates: start: 20070501
  2. SPIRIVA [Concomitant]
  3. THEO 400 [Concomitant]
  4. PREDNISONE [Concomitant]

REACTIONS (1)
  - VISION BLURRED [None]
